FAERS Safety Report 21825922 (Version 3)
Quarter: 2023Q4

REPORT INFORMATION
  Report Type: Report from Study
  Country: KR (occurrence: KR)
  Receive Date: 20230106
  Receipt Date: 20231014
  Transmission Date: 20240109
  Serious: Yes (Other)
  Sender: FDA-Public Use
  Company Number: KR-002147023-NVSC2023KR001627

PATIENT
  Age: 75 Year
  Sex: Male
  Weight: 66.2 kg

DRUGS (3)
  1. ARCAPTA NEOHALER [Suspect]
     Active Substance: INDACATEROL MALEATE
     Indication: Asthma
     Dosage: INDACATEROL ACETATE 150 UG/ GLYCOPYRRONIUM BROMIDE 50 UG/ MOMETASONE FUROATE160 UG), QD
     Dates: start: 20220523, end: 20220616
  2. GLYCOPYRRONIUM\INDACATEROL [Concomitant]
     Active Substance: GLYCOPYRRONIUM\INDACATEROL
     Indication: Asthma
     Dosage: INDACATEROL MALEATE 110 UG/ GLYCOPYRRONIUM BROMIDE 50 UG, QD
     Dates: start: 20201109, end: 20220522
  3. DOXOFYLLINE [Concomitant]
     Active Substance: DOXOFYLLINE
     Indication: Asthma
     Dosage: 1 DOSAGE FORM, BID
     Route: 048
     Dates: start: 20201109

REACTIONS (1)
  - Paralysis [Recovered/Resolved]

NARRATIVE: CASE EVENT DATE: 20220616
